FAERS Safety Report 10031523 (Version 1)
Quarter: 2014Q1

REPORT INFORMATION
  Report Type: Spontaneous
  Country: IR (occurrence: IR)
  Receive Date: 20140324
  Receipt Date: 20140324
  Transmission Date: 20141002
  Serious: Yes (Hospitalization)
  Sender: FDA-Public Use
  Company Number: IR-MYLANLABS-2014S1005560

PATIENT
  Age: 27 Year
  Sex: Male

DRUGS (6)
  1. ALPRAZOLAM [Suspect]
     Indication: OVERDOSE
     Dosage: 20 X 0.5MG TABLETS
     Route: 048
  2. ALPRAZOLAM [Suspect]
     Indication: OFF LABEL USE
     Dosage: 20 X 0.5MG TABLETS
     Route: 048
  3. CLONIDINE [Suspect]
     Indication: OVERDOSE
     Dosage: 20 X 0.1MG TABLETS
     Route: 048
  4. CLONIDINE [Suspect]
     Indication: OFF LABEL USE
     Dosage: 20 X 0.1MG TABLETS
     Route: 048
  5. CLONAZEPAM [Suspect]
     Indication: OVERDOSE
     Dosage: 20 X 1MG TABLETS
     Route: 048
  6. CLONAZEPAM [Suspect]
     Indication: OFF LABEL USE
     Dosage: 20 X 1MG TABLETS
     Route: 048

REACTIONS (8)
  - Overdose [Recovering/Resolving]
  - Delirium [Recovering/Resolving]
  - Hypotension [Recovering/Resolving]
  - Respiratory acidosis [Recovered/Resolved]
  - Respiratory alkalosis [Recovered/Resolved]
  - Metabolic acidosis [Recovered/Resolved]
  - Metabolic alkalosis [Recovered/Resolved]
  - Bradycardia [Recovered/Resolved]
